FAERS Safety Report 6967568-2 (Version None)
Quarter: 2010Q3

REPORT INFORMATION
  Report Type: 
  Country: None (occurrence: None)
  Receive Date: 20100901
  Receipt Date: 20100818
  Transmission Date: 20110219
  Serious: Yes (Hospitalization)
  Sender: FDA-Public Use
  Company Number: 2010MA001863

PATIENT
  Age: 45 Year
  Sex: Male

DRUGS (2)
  1. METFORMIN HYDROCHLORIDE [Suspect]
  2. LITHIUM CARBONATE [Suspect]

REACTIONS (12)
  - ABDOMINAL PAIN UPPER [None]
  - COMA [None]
  - DEHYDRATION [None]
  - DEPRESSED LEVEL OF CONSCIOUSNESS [None]
  - DIARRHOEA [None]
  - HAEMODIALYSIS [None]
  - LACTIC ACIDOSIS [None]
  - POLYURIA [None]
  - RENAL FAILURE ACUTE [None]
  - SUICIDE ATTEMPT [None]
  - TACHYCARDIA [None]
  - THERAPEUTIC AGENT TOXICITY [None]
